FAERS Safety Report 9358694 (Version 4)
Quarter: 2013Q3

REPORT INFORMATION
  Report Type: Spontaneous
  Country: JP (occurrence: JP)
  Receive Date: 20130620
  Receipt Date: 20130718
  Transmission Date: 20140515
  Serious: Yes (Hospitalization)
  Sender: FDA-Public Use
  Company Number: JP-GLAXOSMITHKLINE-B0900064A

PATIENT
  Age: 84 Year
  Sex: Female
  Weight: 41 kg

DRUGS (5)
  1. VALTREX [Suspect]
     Indication: HERPES ZOSTER
     Dosage: 1000MG TWICE PER DAY
     Route: 048
     Dates: start: 20130507, end: 20130509
  2. VALTREX [Suspect]
     Indication: HERPES ZOSTER
     Dosage: 1000MG THREE TIMES PER DAY
     Route: 048
     Dates: start: 20130510, end: 20130511
  3. LYRICA [Suspect]
     Indication: PRODUCT USED FOR UNKNOWN INDICATION
     Dosage: 150MG PER DAY
     Route: 048
     Dates: start: 20130509, end: 20130510
  4. CELECOXIB [Concomitant]
     Indication: CHEST PAIN
     Route: 048
     Dates: start: 20130507
  5. REBAMIPIDE [Concomitant]
     Route: 048
     Dates: start: 20130507

REACTIONS (6)
  - Altered state of consciousness [Recovering/Resolving]
  - Encephalopathy [Recovering/Resolving]
  - Escherichia urinary tract infection [Unknown]
  - Renal failure acute [Recovered/Resolved]
  - Neurogenic bladder [Unknown]
  - Dehydration [Unknown]
